FAERS Safety Report 9272412 (Version 1)
Quarter: 2013Q2

REPORT INFORMATION
  Report Type: Spontaneous
  Country: US (occurrence: US)
  Receive Date: 20130506
  Receipt Date: 20130506
  Transmission Date: 20140414
  Serious: No
  Sender: FDA-Public Use
  Company Number: US-ASTRAZENECA-2012SE95116

PATIENT
  Sex: Female
  Weight: 38.5 kg

DRUGS (2)
  1. PRILOSEC OTC [Suspect]
     Dosage: UNKNOWN
     Route: 048
  2. ESTROGEN NOS [Concomitant]
     Dosage: UNKNOWN

REACTIONS (1)
  - Metrorrhagia [Unknown]
